FAERS Safety Report 9461283 (Version 2)
Quarter: 2013Q3

REPORT INFORMATION
  Report Type: Spontaneous
  Country: US (occurrence: US)
  Receive Date: 20130816
  Receipt Date: 20130919
  Transmission Date: 20140515
  Serious: No
  Sender: FDA-Public Use
  Company Number: US-PFIZER INC-2013233909

PATIENT
  Age: 56 Year
  Sex: Female

DRUGS (2)
  1. INLYTA [Suspect]
     Indication: MALIGNANT URINARY TRACT NEOPLASM
     Dosage: 5 MG, UNK
     Dates: start: 20130703
  2. SYNTHROID [Concomitant]
     Indication: THYROID DISORDER
     Dosage: UNK

REACTIONS (4)
  - Blood thyroid stimulating hormone abnormal [Unknown]
  - Hypertension [Recovered/Resolved]
  - Disease progression [Unknown]
  - Malignant urinary tract neoplasm [Unknown]
